FAERS Safety Report 8096028-3 (Version None)
Quarter: 2012Q1

REPORT INFORMATION
  Report Type: 
  Country: None (occurrence: None)
  Receive Date: 20120129
  Receipt Date: 20111222
  Transmission Date: 20120608
  Serious: No
  Sender: FDA-Public Use
  Company Number: US-ABBOTT-11P-163-0887105-00

PATIENT
  Age: 58 Year
  Sex: Female

DRUGS (6)
  1. PAXIL [Concomitant]
     Indication: ANXIETY
  2. TRIAMCINOLONE [Concomitant]
     Indication: PSORIASIS
     Dosage: EVERY DAY
  3. HUMIRA [Suspect]
     Indication: PSORIATIC ARTHROPATHY
     Dates: start: 20111121, end: 20111121
  4. HYDROCHLOROTHIAZIDE [Concomitant]
     Indication: HYPERTENSION
  5. LEVOTHYROXINE SODIUM [Concomitant]
     Indication: HYPOTHYROIDISM
  6. TRIFLUOPERAZINE HCL [Concomitant]
     Indication: ANXIETY

REACTIONS (2)
  - BREAST ABSCESS [None]
  - BREAST PAIN [None]
